FAERS Safety Report 8900205 (Version 5)
Quarter: 2014Q2

REPORT INFORMATION
  Report Type: Spontaneous
  Country: US (occurrence: US)
  Receive Date: 20121109
  Receipt Date: 20140508
  Transmission Date: 20141212
  Serious: Yes (Death, Hospitalization, Other)
  Sender: FDA-Public Use
  Company Number: US-009507513-1211USA003574

PATIENT
  Sex: Female

DRUGS (6)
  1. FOSAMAX [Suspect]
     Indication: OSTEOPOROSIS
     Route: 048
  2. FOSAMAX [Suspect]
     Indication: OSTEOPOROSIS PROPHYLAXIS
     Dosage: UNK
     Route: 048
     Dates: start: 20130422
  3. ALENDRONATE SODIUM [Suspect]
     Indication: OSTEOPOROSIS
     Dosage: 70 MG, QW
     Route: 048
     Dates: start: 20130809
  4. ALENDRONATE SODIUM [Suspect]
     Indication: OSTEOPOROSIS PROPHYLAXIS
  5. HORMONES (UNSPECIFIED) [Concomitant]
     Dosage: UNK
     Dates: start: 1965, end: 2005
  6. PREMPRO [Concomitant]
     Dosage: UNK
     Dates: start: 1990, end: 2005

REACTIONS (23)
  - Femur fracture [Unknown]
  - Intramedullary rod insertion [Unknown]
  - Lung neoplasm malignant [Fatal]
  - Dyspnoea [Fatal]
  - Bladder cancer [Unknown]
  - Blood chloride decreased [Unknown]
  - Blood potassium decreased [Unknown]
  - Hyponatraemia [Unknown]
  - Bladder operation [Unknown]
  - Lung lobectomy [Unknown]
  - Breast cancer [Unknown]
  - Breast operation [Unknown]
  - Low turnover osteopathy [Unknown]
  - Denture wearer [Unknown]
  - Hypertension [Unknown]
  - Osteoporosis [Unknown]
  - Chronic obstructive pulmonary disease [Unknown]
  - Emphysema [Unknown]
  - Cough [Unknown]
  - Rhinorrhoea [Unknown]
  - Biopsy breast [Unknown]
  - Type 2 diabetes mellitus [Unknown]
  - Cerumen impaction [Unknown]
